FAERS Safety Report 13214252 (Version 1)
Quarter: 2017Q1

REPORT INFORMATION
  Report Type: Spontaneous
  Country: US (occurrence: US)
  Receive Date: 20170209
  Receipt Date: 20170209
  Transmission Date: 20170428
  Serious: No
  Sender: FDA-Public Use
  Company Number: US-ALLERGAN-1668951US

PATIENT
  Age: 31 Year
  Sex: Female

DRUGS (3)
  1. BOTOX COSMETIC [Suspect]
     Active Substance: ONABOTULINUMTOXINA
     Indication: SKIN WRINKLING
  2. BOTOX COSMETIC [Suspect]
     Active Substance: ONABOTULINUMTOXINA
     Indication: SKIN WRINKLING
     Dosage: 40 UNITS, SINGLE
     Route: 030
     Dates: start: 20160821, end: 20160821
  3. BOTOX COSMETIC [Suspect]
     Active Substance: ONABOTULINUMTOXINA
     Indication: SKIN WRINKLING
     Dosage: UNK

REACTIONS (11)
  - Parosmia [Unknown]
  - Ear pain [Unknown]
  - Dizziness [Unknown]
  - Lyme disease [Unknown]
  - Abdominal pain upper [Unknown]
  - Activities of daily living impaired [Unknown]
  - Thinking abnormal [Unknown]
  - Visual impairment [Unknown]
  - Diarrhoea [Unknown]
  - Headache [Unknown]
  - Head discomfort [Unknown]

NARRATIVE: CASE EVENT DATE: 20160821
